FAERS Safety Report 8833020 (Version 1)
Quarter: 2012Q4

REPORT INFORMATION
  Report Type: Spontaneous
  Country: US (occurrence: None)
  Receive Date: 20121009
  Receipt Date: 20121009
  Transmission Date: 20130627
  Serious: Yes (Other)
  Sender: FDA-Public Use
  Company Number: None

PATIENT
  Age: 33 Year
  Sex: Male
  Weight: 81.65 kg

DRUGS (1)
  1. LISTERINE MOUTHWASH [Suspect]
     Indication: DENTAL DISORDER PROPHYLAXIS
     Route: 048
     Dates: start: 201208

REACTIONS (3)
  - Hypoaesthesia oral [None]
  - Product contamination [None]
  - Product quality issue [None]
